FAERS Safety Report 7413048-X (Version None)
Quarter: 2011Q2

REPORT INFORMATION
  Report Type: 
  Country: None (occurrence: None)
  Receive Date: 20110413
  Receipt Date: 20110329
  Transmission Date: 20111010
  Serious: Yes (Hospitalization, Other)
  Sender: FDA-Public Use
  Company Number: US-CELGENEUS-163-21880-11010832

PATIENT
  Sex: Female
  Weight: 44.492 kg

DRUGS (33)
  1. PRILOSEC [Concomitant]
     Route: 065
  2. FENTANYL [Concomitant]
     Dosage: 50 MICROGRAM
     Route: 062
  3. TRAZODONE [Concomitant]
     Route: 065
  4. DILAUDID [Concomitant]
     Indication: PAIN
     Dosage: 4 MILLIGRAM
     Route: 051
  5. SENNA [Concomitant]
     Route: 065
  6. ONDANSETRON [Concomitant]
     Route: 065
  7. PREDNISONE [Concomitant]
     Route: 065
  8. IMIPRAMINE [Concomitant]
     Dosage: 25 MILLIGRAM
     Route: 065
  9. VITAMIN D [Concomitant]
     Route: 065
  10. ARFORMOTEROL TARTRATE [Concomitant]
     Route: 065
  11. CHOLECALCIFEROL [Concomitant]
     Route: 065
  12. GUAIFENESIN [Concomitant]
     Route: 065
  13. MORPHINE [Concomitant]
     Dosage: 30 MILLIGRAM
     Route: 065
  14. LORAZEPAM [Concomitant]
     Route: 065
  15. FLEXERIL [Concomitant]
     Route: 065
  16. OXYCODONE [Concomitant]
     Indication: PAIN
     Dosage: 5 MILLIGRAM
     Route: 065
  17. FENTANYL [Concomitant]
     Dosage: 75 MICROGRAM
     Route: 062
  18. ASPIRIN [Concomitant]
     Dosage: 81 MILLIGRAM
     Route: 065
  19. DOCUSATE [Concomitant]
     Route: 065
  20. REVLIMID [Suspect]
     Dosage: 10 MILLIGRAM
     Route: 048
     Dates: start: 20101118
  21. ALPRAZOLAM [Concomitant]
     Route: 065
  22. REVLIMID [Suspect]
     Indication: MULTIPLE MYELOMA
     Dosage: 10 MILLIGRAM
     Route: 048
     Dates: start: 20100721
  23. ALBUTEROL [Concomitant]
     Route: 055
  24. AREDIA [Concomitant]
     Route: 050
  25. FORADIL [Concomitant]
     Route: 065
  26. MULTI-VITAMINS [Concomitant]
     Route: 065
  27. ENOXAPARIN [Concomitant]
     Route: 065
  28. GABAPENTIN [Concomitant]
     Dosage: 100 MILLIGRAM
     Route: 065
  29. MELPHALAN [Concomitant]
     Route: 065
  30. LOVASTATIN [Concomitant]
     Dosage: 20 MILLIGRAM
     Route: 065
  31. DEXAMETHASONE [Concomitant]
     Dosage: 40 MILLIGRAM
     Route: 065
  32. CALCIUM CARBONATE [Concomitant]
     Route: 065
  33. INSULIN [Concomitant]
     Route: 065

REACTIONS (2)
  - PAIN [None]
  - PLASMACYTOMA [None]
